FAERS Safety Report 18957024 (Version 14)
Quarter: 2021Q3

REPORT INFORMATION
  Report Type: Other
  Country: AT (occurrence: AT)
  Receive Date: 20210302
  Receipt Date: 20210826
  Transmission Date: 20211014
  Serious: Yes (Hospitalization)
  Sender: FDA-Public Use
  Company Number: AT-ROCHE-2771980

PATIENT
  Age: 55 Year
  Sex: Female
  Weight: 100.9 kg

DRUGS (36)
  1. SPIRIVA [Concomitant]
     Active Substance: TIOTROPIUM BROMIDE MONOHYDRATE
     Dates: start: 20201203
  2. GABAPENTIN. [Concomitant]
     Active Substance: GABAPENTIN
     Dates: start: 201809
  3. NOVALGIN (AUSTRIA) [Concomitant]
     Dates: start: 202012
  4. ONDANSETRON [Concomitant]
     Active Substance: ONDANSETRON
     Dates: start: 20210317, end: 20210324
  5. ONDANSETRON [Concomitant]
     Active Substance: ONDANSETRON
     Dates: start: 20210320
  6. ARANESP [Concomitant]
     Active Substance: DARBEPOETIN ALFA
     Dates: start: 20210319, end: 20210319
  7. XGEVA [Concomitant]
     Active Substance: DENOSUMAB
     Dates: start: 20210319, end: 20210319
  8. HYDAL [Concomitant]
     Active Substance: HYDROMORPHONE HYDROCHLORIDE
     Dosage: 1.3 MG
     Dates: start: 20210319
  9. ONDANSETRON [Concomitant]
     Active Substance: ONDANSETRON
     Dates: start: 20210129, end: 20210202
  10. ONDANSETRON [Concomitant]
     Active Substance: ONDANSETRON
     Dates: start: 20210326
  11. NEULASTA [Concomitant]
     Active Substance: PEGFILGRASTIM
     Dates: start: 20210320, end: 20210320
  12. LANSOBENE [Concomitant]
     Dates: start: 200509
  13. TEGRETOL [Concomitant]
     Active Substance: CARBAMAZEPINE
     Dates: start: 202011
  14. ONDANSETRON [Concomitant]
     Active Substance: ONDANSETRON
     Dates: start: 20210227, end: 20210303
  15. DEXAMETHASONE. [Concomitant]
     Active Substance: DEXAMETHASONE
     Dates: start: 20210126, end: 20210128
  16. DEXAMETHASONE. [Concomitant]
     Active Substance: DEXAMETHASONE
     Dates: start: 20210317, end: 20210319
  17. HYDAL RETARD [Concomitant]
     Active Substance: HYDROMORPHONE HYDROCHLORIDE
     Dosage: RET. 2MG
     Dates: start: 20210317
  18. JANUMET [Concomitant]
     Active Substance: METFORMIN HYDROCHLORIDE\SITAGLIPTIN PHOSPHATE
     Dates: start: 201706
  19. LIXIANA [Concomitant]
     Active Substance: EDOXABAN TOSYLATE
     Dates: start: 202007, end: 20210126
  20. DEXAMETHASONE. [Concomitant]
     Active Substance: DEXAMETHASONE
     Dates: start: 20210224, end: 20210226
  21. ATEZOLIZUMAB. [Suspect]
     Active Substance: ATEZOLIZUMAB
     Indication: SMALL CELL LUNG CANCER EXTENSIVE STAGE
     Dosage: FURTHER DOSES RECEIVED ON 26/JAN/2021
     Route: 041
     Dates: start: 20210105
  22. ONDANSETRON [Concomitant]
     Active Substance: ONDANSETRON
     Dates: start: 20210224, end: 20210226
  23. NEULASTA [Concomitant]
     Active Substance: PEGFILGRASTIM
     Dates: start: 20210227, end: 20210227
  24. MOLAXOLE [Concomitant]
     Active Substance: POLYETHYLENE GLYCOL 3350\POTASSIUM CHLORIDE\SODIUM BICARBONATE\SODIUM CHLORIDE
     Dates: start: 20210319
  25. AMLODIPINE [Concomitant]
     Active Substance: AMLODIPINE BESYLATE
     Dates: start: 200911
  26. ONDANSETRON [Concomitant]
     Active Substance: ONDANSETRON
     Dates: start: 20210126, end: 20210128
  27. ARANESP [Concomitant]
     Active Substance: DARBEPOETIN ALFA
     Dates: start: 20210215, end: 20210215
  28. CARVEDILOL. [Concomitant]
     Active Substance: CARVEDILOL
     Dates: start: 200905
  29. LIXIANA [Concomitant]
     Active Substance: EDOXABAN TOSYLATE
     Dates: start: 20210129
  30. DEXABENE [Concomitant]
     Indication: PAROTITIS
     Dates: start: 20210217, end: 20210218
  31. XGEVA [Concomitant]
     Active Substance: DENOSUMAB
     Dates: start: 20210226, end: 20210226
  32. CALCIDURAN [Concomitant]
     Active Substance: ASCORBIC ACID\CALCIUM PHOSPHATE\CHOLECALCIFEROL\CITRIC ACID MONOHYDRATE
     Dates: start: 20210224
  33. PFIZER?BIONTECH COVID?19 VACCINE [Concomitant]
     Active Substance: TOZINAMERAN
     Dosage: BIONTECH/PFIZER
     Dates: start: 20210327, end: 20210327
  34. OLEOVIT D3 [Concomitant]
     Active Substance: CHOLECALCIFEROL
     Indication: PROPHYLAXIS
     Dates: start: 20210225
  35. CARBOPLATIN. [Suspect]
     Active Substance: CARBOPLATIN
     Indication: SMALL CELL LUNG CANCER EXTENSIVE STAGE
     Route: 065
     Dates: start: 20210105
  36. ETOPOSIDE. [Suspect]
     Active Substance: ETOPOSIDE
     Indication: SMALL CELL LUNG CANCER EXTENSIVE STAGE
     Route: 065
     Dates: start: 20210105

REACTIONS (5)
  - Anaemia [Not Recovered/Not Resolved]
  - Pyrexia [Recovered/Resolved]
  - Parotitis [Not Recovered/Not Resolved]
  - Chest pain [Not Recovered/Not Resolved]
  - Platelet count decreased [Recovered/Resolved]

NARRATIVE: CASE EVENT DATE: 20210213
